FAERS Safety Report 19241397 (Version 1)
Quarter: 2021Q2

REPORT INFORMATION
  Report Type: Spontaneous
  Country: US (occurrence: US)
  Receive Date: 20210511
  Receipt Date: 20210511
  Transmission Date: 20210717
  Serious: Yes (Hospitalization)
  Sender: FDA-Public Use
  Company Number: None

PATIENT
  Age: 50 Year
  Sex: Female
  Weight: 60 kg

DRUGS (1)
  1. ASPIRIN. [Suspect]
     Active Substance: ASPIRIN
     Dates: end: 20210217

REACTIONS (8)
  - Paraesthesia [None]
  - Dizziness [None]
  - Fall [None]
  - Subarachnoid haemorrhage [None]
  - Metastatic neoplasm [None]
  - Limb injury [None]
  - Nasal injury [None]
  - Loss of consciousness [None]

NARRATIVE: CASE EVENT DATE: 20210217
